FAERS Safety Report 8432955 (Version 3)
Quarter: 2013Q2

REPORT INFORMATION
  Report Type: Spontaneous
  Country: FR (occurrence: FR)
  Receive Date: 20120229
  Receipt Date: 20130403
  Transmission Date: 20140414
  Serious: Yes (Death, Hospitalization, Other)
  Sender: FDA-Public Use
  Company Number: FR-ROCHE-1044097

PATIENT
  Age: 13 Year
  Sex: Female
  Weight: 51 kg

DRUGS (8)
  1. XOLAIR [Suspect]
     Indication: ASTHMA
     Route: 030
     Dates: start: 2010
  2. XOLAIR [Suspect]
     Route: 042
     Dates: start: 201201, end: 201202
  3. VENTOLINE [Suspect]
     Indication: ASTHMA
     Route: 065
     Dates: start: 20120209
  4. SOLUPRED (FRANCE) [Suspect]
     Indication: ASTHMA
     Route: 065
     Dates: start: 20120210
  5. BRICANYL [Suspect]
     Indication: ASTHMA
     Dosage: DOSE 0.5 MG/ML
     Route: 065
     Dates: start: 20120210
  6. AERIUS [Concomitant]
     Route: 065
  7. SINGULAIR [Concomitant]
     Route: 065
  8. PULMICORT [Concomitant]
     Route: 065

REACTIONS (7)
  - Asthmatic crisis [Fatal]
  - Cardio-respiratory arrest [Fatal]
  - Anxiety [Unknown]
  - Cyanosis [Unknown]
  - Respiratory disorder [Unknown]
  - Drug ineffective [Unknown]
  - Incorrect route of drug administration [Unknown]
